FAERS Safety Report 7062253-3 (Version None)
Quarter: 2010Q4

REPORT INFORMATION
  Report Type: 
  Country: None (occurrence: None)
  Receive Date: 20101026
  Receipt Date: 20101020
  Transmission Date: 20110411
  Serious: Yes (Other)
  Sender: FDA-Public Use
  Company Number: BE-WYE-H18315010

PATIENT
  Sex: Female

DRUGS (2)
  1. PANTOMED [Suspect]
     Indication: ULCER
     Dates: start: 20100101, end: 20100701
  2. PANTOMED [Suspect]
     Dates: start: 20100701

REACTIONS (1)
  - SYSTEMIC LUPUS ERYTHEMATOSUS [None]
